FAERS Safety Report 13156609 (Version 10)
Quarter: 2017Q2

REPORT INFORMATION
  Report Type: Spontaneous
  Country: US (occurrence: US)
  Receive Date: 20170126
  Receipt Date: 20170526
  Transmission Date: 20170830
  Serious: Yes (Hospitalization, Other)
  Sender: FDA-Public Use
  Company Number: US-ACTELION-A-US2017-149072

PATIENT
  Age: 66 Year
  Sex: Female
  Weight: 78.46 kg

DRUGS (5)
  1. VELETRI [Suspect]
     Active Substance: EPOPROSTENOL
     Dosage: 24 NG/KG, PER MIN
     Route: 042
  2. REVATIO [Concomitant]
     Active Substance: SILDENAFIL CITRATE
  3. OPSUMIT [Suspect]
     Active Substance: MACITENTAN
     Indication: PULMONARY ARTERIAL HYPERTENSION
     Dosage: 10 MG, QD
     Route: 048
     Dates: start: 20161229
  4. ELIQUIS [Concomitant]
     Active Substance: APIXABAN
     Dosage: 10 MG, BID
  5. VELETRI [Suspect]
     Active Substance: EPOPROSTENOL
     Indication: PULMONARY ARTERIAL HYPERTENSION
     Dosage: 23 NG/KG, PER MIN
     Route: 042
     Dates: start: 20161017

REACTIONS (25)
  - Fatigue [Recovered/Resolved]
  - Swelling [Unknown]
  - Anaemia [Recovered/Resolved]
  - Dyspnoea [Recovered/Resolved]
  - Nausea [Unknown]
  - Device breakage [Recovered/Resolved]
  - Gastrointestinal polyp haemorrhage [Unknown]
  - Nasal congestion [Not Recovered/Not Resolved]
  - Rash [Unknown]
  - Haemoglobin decreased [Recovered/Resolved]
  - Pulmonary congestion [Unknown]
  - Weight decreased [Unknown]
  - Oedema mucosal [Unknown]
  - Transfusion [Unknown]
  - Asthenia [Recovered/Resolved]
  - Erosive oesophagitis [Unknown]
  - Intestinal polyp [Unknown]
  - Peripheral swelling [Unknown]
  - Oropharyngeal pain [Unknown]
  - Palpitations [Unknown]
  - Internal haemorrhage [Unknown]
  - Pulmonary arterial hypertension [Not Recovered/Not Resolved]
  - Oxygen saturation decreased [Unknown]
  - Oedema [Unknown]
  - Therapy non-responder [Not Recovered/Not Resolved]

NARRATIVE: CASE EVENT DATE: 20170101
